FAERS Safety Report 8616235 (Version 2)
Quarter: 2013Q2

REPORT INFORMATION
  Report Type: Spontaneous
  Country: JP (occurrence: JP)
  Receive Date: 20120614
  Receipt Date: 20130415
  Transmission Date: 20140414
  Serious: Yes (Hospitalization)
  Sender: FDA-Public Use
  Company Number: PHHY2012JP050352

PATIENT
  Sex: Male
  Weight: 65 kg

DRUGS (3)
  1. DOCETAXEL [Suspect]
     Indication: GASTRIC CANCER STAGE III
     Dosage: 40 MG/M2
  2. CISPLATIN [Suspect]
     Indication: GASTRIC CANCER STAGE III
     Dosage: 60 MG/M2
     Route: 042
  3. GIMERACIL W/OTERACIL POTASSIUM/TEGAFUR [Suspect]
     Indication: GASTRIC CANCER STAGE III
     Dosage: 80 MG/M2
     Route: 048

REACTIONS (7)
  - Gastric perforation [Recovered/Resolved]
  - Shock [Recovered/Resolved]
  - Diarrhoea [Recovered/Resolved]
  - Abdominal pain [Recovered/Resolved]
  - Ascites [Recovered/Resolved]
  - Peritonitis [Recovered/Resolved]
  - Decreased appetite [Recovered/Resolved]
